FAERS Safety Report 23954688 (Version 2)
Quarter: 2024Q2

REPORT INFORMATION
  Report Type: Spontaneous
  Country: US (occurrence: US)
  Receive Date: 20240610
  Receipt Date: 20240626
  Transmission Date: 20240716
  Serious: Yes (Other)
  Sender: FDA-Public Use
  Company Number: US-BRISTOL-MYERS SQUIBB COMPANY-2024-091934

PATIENT
  Age: 78 Year
  Sex: Female
  Weight: 52.16 kg

DRUGS (1)
  1. ELIQUIS [Suspect]
     Active Substance: APIXABAN
     Indication: Deep vein thrombosis
     Route: 048

REACTIONS (3)
  - Accidental overdose [Unknown]
  - Squamous cell carcinoma [Unknown]
  - Contusion [Unknown]

NARRATIVE: CASE EVENT DATE: 20240605
